FAERS Safety Report 12329103 (Version 4)
Quarter: 2016Q4

REPORT INFORMATION
  Report Type: Spontaneous
  Country: US (occurrence: US)
  Receive Date: 20160503
  Receipt Date: 20161017
  Transmission Date: 20170207
  Serious: No
  Sender: FDA-Public Use
  Company Number: US-PFIZER INC-2016232042

PATIENT
  Age: 84 Year
  Sex: Female
  Weight: 73.92 kg

DRUGS (4)
  1. IBRANCE [Suspect]
     Active Substance: PALBOCICLIB
     Dosage: 100 MG, CYCLIC (DAYS 1-21 EVERY 28 DAYS)
     Route: 048
     Dates: start: 20160305
  2. IBRANCE [Suspect]
     Active Substance: PALBOCICLIB
     Indication: BREAST CANCER METASTATIC
     Dosage: 100 MG, CYCLIC (DAYS 1-21 EVERY 28 DAYS)
     Route: 048
     Dates: start: 20160305
  3. LETROZOLE. [Suspect]
     Active Substance: LETROZOLE
     Dosage: UNK
  4. IBRANCE [Suspect]
     Active Substance: PALBOCICLIB
     Dosage: 100 MG, CYCLIC (DAYS 1-21 EVERY 28 DAYS)
     Route: 048
     Dates: start: 20160403

REACTIONS (6)
  - White blood cell count decreased [Unknown]
  - Red blood cell count decreased [Unknown]
  - Neoplasm progression [Unknown]
  - Fatigue [Unknown]
  - Nausea [Recovering/Resolving]
  - Hyperchlorhydria [Unknown]
